FAERS Safety Report 8574483-X (Version None)
Quarter: 2012Q3

REPORT INFORMATION
  Report Type: 
  Country: None (occurrence: None)
  Receive Date: 20120806
  Receipt Date: 20111004
  Transmission Date: 20120928
  Serious: No
  Sender: FDA-Public Use
  Company Number: US-ABBOTT-11P-163-0862071-00

PATIENT
  Sex: Female

DRUGS (4)
  1. EFFEXOR XR [Concomitant]
     Indication: MIGRAINE
  2. DEPAKOTE ER [Suspect]
     Indication: MIGRAINE
     Dates: start: 20110501
  3. EFFEXOR XR [Concomitant]
     Indication: VERTIGO CNS ORIGIN
  4. DEPAKOTE ER [Suspect]
     Indication: VERTIGO CNS ORIGIN

REACTIONS (1)
  - MEDICATION RESIDUE [None]
